FAERS Safety Report 5344926-3 (Version None)
Quarter: 2007Q2

REPORT INFORMATION
  Report Type: 
  Country: None (occurrence: None)
  Receive Date: 20070416
  Receipt Date: 20061219
  Transmission Date: 20071010
  Serious: No
  Sender: FDA-Public Use
  Company Number: 2005SP002219

PATIENT
  Age: 55 Year
  Sex: Male

DRUGS (5)
  1. LUNESTA [Suspect]
     Indication: INSOMNIA
     Dosage: 3 MG; HS; ORAL
     Route: 048
     Dates: start: 20050101, end: 20050101
  2. XANAX [Suspect]
     Dosage: SEE IMAGE
     Route: 048
     Dates: start: 20050101
  3. ABILIFY [Concomitant]
  4. PROZAC [Concomitant]
  5. ADDERALL 10 [Concomitant]

REACTIONS (1)
  - PARADOXICAL DRUG REACTION [None]
